FAERS Safety Report 9018252 (Version 1)
Quarter: 2013Q1

REPORT INFORMATION
  Report Type: Spontaneous
  Country: US (occurrence: None)
  Receive Date: 20130111
  Receipt Date: 20130111
  Transmission Date: 20140127
  Serious: Yes (Hospitalization, Other)
  Sender: FDA-Public Use
  Company Number: None

PATIENT
  Age: 74 Year
  Sex: Male
  Weight: 78.02 kg

DRUGS (8)
  1. XARELTO 20 MG [Suspect]
     Indication: THROMBOSIS PROPHYLAXIS
     Dosage: ONE TABLET DAILY PO
     Route: 048
     Dates: start: 20121129, end: 20121231
  2. CLOPIDOGREL [Concomitant]
  3. ASPIRIN [Concomitant]
  4. AMIODARONE [Concomitant]
  5. FUROSEMIDE [Concomitant]
  6. SPIRONOLACTONE [Concomitant]
  7. CARVEDIOL [Concomitant]
  8. LISINOPRIL [Concomitant]

REACTIONS (4)
  - Blue toe syndrome [None]
  - Renal impairment [None]
  - Vascular pseudoaneurysm [None]
  - Embolism [None]
